FAERS Safety Report 15175708 (Version 1)
Quarter: 2018Q3

REPORT INFORMATION
  Report Type: Report from Study
  Country: US (occurrence: US)
  Receive Date: 20180720
  Receipt Date: 20180720
  Transmission Date: 20181010
  Serious: Yes (Hospitalization)
  Sender: FDA-Public Use
  Company Number: US-ACTELION-A-NJ2018-175798

PATIENT
  Age: 60 Year
  Sex: Female
  Weight: 44.44 kg

DRUGS (1)
  1. TRACLEER [Suspect]
     Active Substance: BOSENTAN
     Indication: PULMONARY ARTERIAL HYPERTENSION
     Dosage: 125 MG, BID
     Route: 048

REACTIONS (3)
  - Blood urine present [Recovered/Resolved]
  - Renal artery stent placement [Recovered/Resolved]
  - Renal artery stent removal [Recovered/Resolved]

NARRATIVE: CASE EVENT DATE: 201805
